FAERS Safety Report 5612503-2 (Version None)
Quarter: 2008Q1

REPORT INFORMATION
  Report Type: 
  Country: None (occurrence: None)
  Receive Date: 20080128
  Receipt Date: 20080115
  Transmission Date: 20080703
  Serious: Yes (Other)
  Sender: FDA-Public Use
  Company Number: 2008001459

PATIENT
  Age: 57 Year
  Sex: Female
  Weight: 104.3273 kg

DRUGS (1)
  1. LISTERINE (MENTHOL, METHYL SALICYLATE, EUCALYPTOL, THYMOL) [Suspect]
     Indication: DENTAL DISORDER PROPHYLAXIS
     Dosage: TABLESPOON ONE TIME, ORAL
     Route: 048
     Dates: start: 20071224, end: 20071224

REACTIONS (5)
  - CAUSTIC INJURY [None]
  - CHEILITIS [None]
  - LIP SWELLING [None]
  - OEDEMA MOUTH [None]
  - STOMATITIS [None]
